FAERS Safety Report 4300403-X (Version None)
Quarter: 2004Q1

REPORT INFORMATION
  Report Type: 
  Country: None (occurrence: None)
  Receive Date: 20040218
  Receipt Date: 20040218
  Transmission Date: 20041129
  Serious: Yes (Hospitalization)
  Sender: FDA-Public Use
  Company Number: None

PATIENT
  Age: 85 Year
  Sex: Male
  Weight: 74.3 kg

DRUGS (10)
  1. IRBESARTAN [Suspect]
     Indication: HYPERTENSION
     Dosage: 75 MG BID
  2. ALLOPURINOL [Concomitant]
  3. ASPIRIN [Concomitant]
  4. TERAZOSIN HCL [Concomitant]
  5. DILTIAZEM [Concomitant]
  6. PROPRANOLOL [Concomitant]
  7. GABAPENTIN [Concomitant]
  8. HYDROCHLOROTHIAZIDE [Concomitant]
  9. METHOCARBAMOL [Concomitant]
  10. NITROGLYCERIN [Concomitant]

REACTIONS (4)
  - DIZZINESS [None]
  - DIZZINESS POSTURAL [None]
  - HYPOTENSION [None]
  - SYNCOPE [None]
